FAERS Safety Report 15287300 (Version 2)
Quarter: 2018Q3

REPORT INFORMATION
  Report Type: Spontaneous
  Country: JP (occurrence: JP)
  Receive Date: 20180817
  Receipt Date: 20180829
  Transmission Date: 20181010
  Serious: Yes (Life-Threatening, Disabling, Other)
  Sender: FDA-Public Use
  Company Number: JP-ROCHE-2161310

PATIENT
  Age: 77 Year
  Sex: Female
  Weight: 43 kg

DRUGS (3)
  1. XELODA [Suspect]
     Active Substance: CAPECITABINE
     Indication: BREAST CANCER
     Dosage: DATE OF LAST ADMINISTRATION :07/JUL/2018, 2 WEEK ADMINISTRATION FOLLOWED BY 1 WEEK REST
     Route: 048
     Dates: start: 20180704
  2. TYKERB [Suspect]
     Active Substance: LAPATINIB DITOSYLATE
     Indication: BREAST CANCER
     Dosage: DOSE INTERVAL UNCERTAINTY
     Route: 048
     Dates: start: 20180704, end: 20180705
  3. TYKERB [Suspect]
     Active Substance: LAPATINIB DITOSYLATE
     Dosage: DOSE INTERVAL UNCERTAINTY
     Route: 048
     Dates: start: 20180706, end: 20180707

REACTIONS (4)
  - Peripheral arterial occlusive disease [Recovered/Resolved with Sequelae]
  - Gastrointestinal haemorrhage [Recovered/Resolved]
  - Dehydration [Recovered/Resolved with Sequelae]
  - Diarrhoea [Recovered/Resolved]

NARRATIVE: CASE EVENT DATE: 20180705
